FAERS Safety Report 6607493-X (Version None)
Quarter: 2010Q1

REPORT INFORMATION
  Report Type: 
  Country: None (occurrence: None)
  Receive Date: 20100301
  Receipt Date: 20100215
  Transmission Date: 20100710
  Serious: Yes (Other)
  Sender: FDA-Public Use
  Company Number: PHEH2008US08700

PATIENT
  Sex: Female
  Weight: 60.771 kg

DRUGS (10)
  1. ZOMETA [Suspect]
  2. AREDIA [Suspect]
  3. CELESTONE [Concomitant]
     Dosage: 2 ML, UNK
     Dates: start: 20000912
  4. XYLOCAINE [Concomitant]
     Dosage: 1 %, UNK
     Dates: start: 20000912
  5. NABUMETONE [Concomitant]
     Dosage: UNK
  6. PERCOCET [Concomitant]
     Dosage: UNK
     Route: 048
  7. FEMARA [Concomitant]
     Dosage: UNK
     Dates: start: 20031201
  8. DRUG THERAPY NOS [Concomitant]
     Dosage: UNK
     Dates: start: 20031201
  9. FASLODEX [Concomitant]
  10. TAMOXIFEN CITRATE [Concomitant]

REACTIONS (21)
  - ANHEDONIA [None]
  - ANXIETY [None]
  - ARTHRALGIA [None]
  - BACK PAIN [None]
  - COLONIC POLYP [None]
  - COMPRESSION FRACTURE [None]
  - FALL [None]
  - GENERAL PHYSICAL HEALTH DETERIORATION [None]
  - HYPOAESTHESIA [None]
  - INTERVERTEBRAL DISC PROTRUSION [None]
  - METASTASES TO BONE [None]
  - METASTASES TO SPINE [None]
  - MOBILITY DECREASED [None]
  - OSTEOARTHRITIS [None]
  - OSTEONECROSIS [None]
  - PAIN [None]
  - PAIN IN EXTREMITY [None]
  - POLYPECTOMY [None]
  - RADICULOPATHY [None]
  - SPINAL COLUMN STENOSIS [None]
  - SPINAL OSTEOARTHRITIS [None]
